FAERS Safety Report 25034183 (Version 3)
Quarter: 2025Q2

REPORT INFORMATION
  Report Type: Report from Study
  Country: US (occurrence: US)
  Receive Date: 20250304
  Receipt Date: 20250403
  Transmission Date: 20250717
  Serious: Yes (Death, Hospitalization)
  Sender: ROCHE
  Company Number: US-ROCHE-10000218181

PATIENT
  Age: 66 Year
  Sex: Male

DRUGS (20)
  1. AVASTIN [Suspect]
     Active Substance: BEVACIZUMAB
     Indication: Product used for unknown indication
     Route: 065
  2. LONSURF [Suspect]
     Active Substance: TIPIRACIL HYDROCHLORIDE\TRIFLURIDINE
     Indication: Peritoneal carcinoma metastatic
     Dosage: CYCLE UNKNOWN
     Route: 048
     Dates: start: 20240820
  3. LONSURF [Suspect]
     Active Substance: TIPIRACIL HYDROCHLORIDE\TRIFLURIDINE
     Indication: Malignant peritoneal neoplasm
     Route: 048
     Dates: start: 20240820
  4. LONSURF [Suspect]
     Active Substance: TIPIRACIL HYDROCHLORIDE\TRIFLURIDINE
     Indication: Adenocarcinoma
  5. ACETAMINOPHEN [Concomitant]
     Active Substance: ACETAMINOPHEN
     Indication: Product used for unknown indication
  6. CARVEDILOL [Concomitant]
     Active Substance: CARVEDILOL
     Indication: Product used for unknown indication
  7. FUROSEMIDE [Concomitant]
     Active Substance: FUROSEMIDE
     Indication: Product used for unknown indication
  8. IRON [Concomitant]
     Active Substance: IRON
     Indication: Product used for unknown indication
  9. LACTULOSE [Concomitant]
     Active Substance: LACTULOSE
     Indication: Product used for unknown indication
  10. MAGNESIUM [Concomitant]
     Active Substance: MAGNESIUM
     Indication: Product used for unknown indication
  11. OMEPRAZOLE [Concomitant]
     Active Substance: OMEPRAZOLE
     Indication: Product used for unknown indication
  12. PROCHLORPER [Concomitant]
     Indication: Product used for unknown indication
  13. SPIRONOLACTONE [Concomitant]
     Active Substance: SPIRONOLACTONE
     Indication: Product used for unknown indication
  14. THIAMINE HYDROCHLORIDE [Concomitant]
     Active Substance: THIAMINE HYDROCHLORIDE
     Indication: Product used for unknown indication
  15. VITAMIN A [Concomitant]
     Active Substance: VITAMIN A
     Indication: Product used for unknown indication
  16. VITAMIN B6 [Concomitant]
     Active Substance: PYRIDOXINE HYDROCHLORIDE
     Indication: Product used for unknown indication
  17. VITAMIN D [Concomitant]
     Active Substance: VITAMIN D NOS
     Indication: Product used for unknown indication
  18. ZINC [Concomitant]
     Active Substance: ZINC
     Indication: Product used for unknown indication
  19. THIAMINE HYDROCHLORIDE [Concomitant]
     Active Substance: THIAMINE HYDROCHLORIDE
     Indication: Product used for unknown indication
  20. ELIQUIS [Concomitant]
     Active Substance: APIXABAN
     Route: 048

REACTIONS (11)
  - Cerebrovascular accident [Recovering/Resolving]
  - Neutropenia [Unknown]
  - Nausea [Unknown]
  - Off label use [Unknown]
  - Haemoglobin decreased [Unknown]
  - Vertebral lesion [Unknown]
  - Vomiting [Unknown]
  - Dyspnoea [Unknown]
  - Dehydration [Unknown]
  - Heart rate increased [Unknown]
  - Death [Fatal]

NARRATIVE: CASE EVENT DATE: 20241010
